FAERS Safety Report 4399005-9 (Version None)
Quarter: 2004Q3

REPORT INFORMATION
  Report Type: 
  Country: None (occurrence: None)
  Receive Date: 20040712
  Receipt Date: 20040617
  Transmission Date: 20050211
  Serious: Yes (Other)
  Sender: FDA-Public Use
  Company Number: USA040670462

PATIENT
  Age: 58 Year
  Sex: Male

DRUGS (14)
  1. HUMULIN R [Suspect]
     Indication: DIABETES MELLITUS
     Dosage: 60 U DAY
     Dates: start: 20020101
  2. ACTOS [Concomitant]
  3. LANTUS [Concomitant]
  4. AMARYL [Concomitant]
  5. LIPITOR [Concomitant]
  6. TIZANIDINE HCL [Concomitant]
  7. RENAGEL [Concomitant]
  8. PROTONIX [Concomitant]
  9. PLAVIX (CLOPIODOGREL SULFATE) [Concomitant]
  10. NEURONTIN [Concomitant]
  11. FLOMAX [Concomitant]
  12. COZAAR [Concomitant]
  13. EFFEXOR [Concomitant]
  14. EPOGEN [Concomitant]

REACTIONS (2)
  - PERITONEAL DIALYSIS [None]
  - RENAL FAILURE [None]
